FAERS Safety Report 11184049 (Version 1)
Quarter: 2015Q2

REPORT INFORMATION
  Report Type: Spontaneous
  Country: CA (occurrence: CA)
  Receive Date: 20150612
  Receipt Date: 20150612
  Transmission Date: 20150821
  Serious: Yes (Other)
  Sender: FDA-Public Use
  Company Number: CA-JNJFOC-20150603497

PATIENT
  Age: 67 Year
  Sex: Female

DRUGS (3)
  1. RITUXAN [Suspect]
     Active Substance: RITUXIMAB
     Indication: B-CELL LYMPHOMA
     Dates: start: 201201
  2. IBRUTINIB [Suspect]
     Active Substance: IBRUTINIB
     Indication: PRODUCT USED FOR UNKNOWN INDICATION
     Route: 048
     Dates: start: 2014, end: 2015
  3. CVP(CYCLOPHOSPHAMIDE\PREDNISONE\VINCRISTINE) [Suspect]
     Active Substance: CYCLOPHOSPHAMIDE\PREDNISONE\VINCRISTINE
     Indication: B-CELL LYMPHOMA
     Dates: start: 201201

REACTIONS (3)
  - Off label use [Unknown]
  - Hypothyroidism [Unknown]
  - Therapeutic response decreased [Unknown]

NARRATIVE: CASE EVENT DATE: 201501
